FAERS Safety Report 9316614 (Version 1)
Quarter: 2013Q2

REPORT INFORMATION
  Report Type: Spontaneous
  Country: US (occurrence: None)
  Receive Date: 20130524
  Receipt Date: 20130524
  Transmission Date: 20140414
  Serious: Yes (Hospitalization)
  Sender: FDA-Public Use
  Company Number: US-ALSI-201300112

PATIENT
  Age: 2 Month
  Sex: Male

DRUGS (4)
  1. OXYGEN [Suspect]
     Dosage: 2 L ONCE A MINUTE
  2. OXYGEN [Suspect]
     Dosage: 6 L ONCE A MINUTE
  3. (SALBUTAMOL) [Concomitant]
  4. OXYGEN [Suspect]
     Dosage: 8 L ONCE A MINUTE

REACTIONS (4)
  - Pneumothorax [None]
  - Respiratory distress [None]
  - Condition aggravated [None]
  - Barotrauma [None]
